FAERS Safety Report 8536425-2 (Version None)
Quarter: 2012Q3

REPORT INFORMATION
  Report Type: 
  Country: None (occurrence: None)
  Receive Date: 20120712
  Receipt Date: 20120704
  Transmission Date: 20120928
  Serious: Yes (Death, Hospitalization)
  Sender: FDA-Public Use
  Company Number: 2012032202

PATIENT
  Age: 83 Year
  Sex: Male

DRUGS (7)
  1. BICALUTAMIDE [Concomitant]
  2. TAMSULOSIN HCL [Concomitant]
  3. BISOHEXAL (BISOPROLOL HEMIFUMARATE) [Concomitant]
  4. TORSEMIDE [Concomitant]
  5. LYRICA [Concomitant]
  6. PRIVIGEN [Suspect]
     Indication: CHRONIC LYMPHOCYTIC LEUKAEMIA
     Dosage: 20 G QD
     Route: 042
     Dates: start: 20120427, end: 20120427
  7. SIMVASTATIN [Concomitant]

REACTIONS (2)
  - HYPERSENSITIVITY [None]
  - CHILLS [None]
